FAERS Safety Report 5522280-1 (Version None)
Quarter: 2007Q4

REPORT INFORMATION
  Report Type: 
  Country: None (occurrence: None)
  Receive Date: 20071120
  Receipt Date: 20071112
  Transmission Date: 20080405
  Serious: Yes (Hospitalization)
  Sender: FDA-Public Use
  Company Number: US-ELI_LILLY_AND_COMPANY-US200709001046

PATIENT
  Sex: Female

DRUGS (8)
  1. FORTEO [Suspect]
     Indication: OSTEOPOROSIS
     Dosage: 20 UG, DAILY (1/D)
     Dates: start: 20070730
  2. ISOSORB                            /00586302/ [Concomitant]
     Indication: CHEST DISCOMFORT
     Dosage: 60 MG, EACH MORNING
     Dates: start: 20070605
  3. NITROGLYCERIN [Concomitant]
     Indication: CHEST DISCOMFORT
     Dosage: 2 UNK, AS NEEDED
  4. NITROGLYCERIN [Concomitant]
     Dosage: 3 UNK, UNK
     Dates: start: 20070831
  5. TOPROL-XL [Concomitant]
     Dosage: 25 MG, EACH EVENING
     Dates: start: 20070712
  6. VYTORIN [Concomitant]
  7. PREVACID [Concomitant]
  8. ENABLEX                            /01760402/ [Concomitant]

REACTIONS (2)
  - CHEST PAIN [None]
  - GLUCOSE TOLERANCE IMPAIRED [None]
